FAERS Safety Report 9233605 (Version 1)
Quarter: 2013Q1

REPORT INFORMATION
  Report Type: Spontaneous
  Country: US (occurrence: None)
  Receive Date: 20121031
  Receipt Date: 20121031
  Transmission Date: 20140127
  Serious: No
  Sender: FDA-Public Use
  Company Number: PHEH2012US014519

PATIENT
  Age: 59 Year
  Sex: Male

DRUGS (9)
  1. GILENYA (FTY) CAPSULE, 0.5 MG [Suspect]
     Indication: MULTIPLE SCLEROSIS
     Route: 048
     Dates: start: 201101
  2. COENZYME Q10 (UBIDECARENONE) [Concomitant]
  3. VITAMIN D (ERGOCALCIFEROL) [Concomitant]
  4. FISH OIL (FISH OIL) [Concomitant]
  5. CENTRUM (MINERALS NOS, VITAMINS NOS) [Concomitant]
  6. CALTRATE (CALCIUM CARBONATE) [Concomitant]
  7. LIPITOR (ATORVASTATIN CALCIUM) [Concomitant]
  8. CLONAZEPAM (CLONAZEPAM) [Concomitant]
  9. AMANTAN (AMANTADINE HYDROCHLORIDE) [Concomitant]

REACTIONS (2)
  - Joint swelling [None]
  - Arthralgia [None]
